FAERS Safety Report 5055531-0 (Version None)
Quarter: 2006Q3

REPORT INFORMATION
  Report Type: 
  Country: None (occurrence: None)
  Receive Date: 20060717
  Receipt Date: 20060717
  Transmission Date: 20061208
  Serious: Yes (Other)
  Sender: FDA-Public Use
  Company Number: None

PATIENT
  Age: 82 Year
  Sex: Female
  Weight: 66 kg

DRUGS (20)
  1. LEVAQUIN [Suspect]
     Indication: ESCHERICHIA URINARY TRACT INFECTION
     Dosage: 250MG  ONCE DAILY  PO
     Route: 048
     Dates: start: 20060712, end: 20060713
  2. DILTIAZEM HCL [Concomitant]
  3. ATENOLOL [Concomitant]
  4. LISINOPRIL [Concomitant]
  5. PRILOSEC [Concomitant]
  6. MULTIVITAMIN [Concomitant]
  7. LEVOTHYROXINE SODIUM [Concomitant]
  8. FUROSEMIDE [Concomitant]
  9. POTASSIUM [Concomitant]
  10. CALCIUM GLUCONATE [Concomitant]
  11. VITAMIN D [Concomitant]
  12. FOLIC ACID [Concomitant]
  13. DOCUSATE [Concomitant]
  14. PROZAC [Concomitant]
  15. SENNA [Concomitant]
  16. IRON SULFATETHIAMIN COMPOUND TAB [Concomitant]
  17. COUMADIN [Concomitant]
  18. PREDNISONE [Concomitant]
  19. FOSAMAX [Concomitant]
  20. BETOPTIC EYEDROPS [Concomitant]

REACTIONS (1)
  - HYPOGLYCAEMIA [None]
